FAERS Safety Report 4299665-7 (Version None)
Quarter: 2004Q1

REPORT INFORMATION
  Report Type: 
  Country: None (occurrence: None)
  Receive Date: 20040217
  Receipt Date: 20040204
  Transmission Date: 20041129
  Serious: Yes (Hospitalization)
  Sender: FDA-Public Use
  Company Number: 03P-144-0221066-00

PATIENT
  Age: 54 Year
  Sex: Female

DRUGS (7)
  1. DEPAKENE [Suspect]
     Dosage: 500 MG, 2 IN 1 D, ORAL
     Route: 048
     Dates: start: 20030416, end: 20030425
  2. VALPROATE SODIUM [Suspect]
     Dosage: 1.5 GM, 1 IN 1 D, INTRAVENOUS;  3 AMPOULE, ONCE, INTRAVENOUS
     Route: 042
     Dates: start: 20030415, end: 20030415
  3. VALPROATE SODIUM [Suspect]
     Dosage: 1.5 GM, 1 IN 1 D, INTRAVENOUS;  3 AMPOULE, ONCE, INTRAVENOUS
     Route: 042
     Dates: start: 20030415, end: 20030416
  4. PHENOBARBITAL TAB [Concomitant]
  5. PHENYTOIN [Concomitant]
  6. LEVETIRACETAM [Concomitant]
  7. ACYCLOVIR [Concomitant]

REACTIONS (9)
  - ASTERIXIS [None]
  - ATAXIA [None]
  - EATING DISORDER [None]
  - ENCEPHALOPATHY [None]
  - HYPERAMMONAEMIA [None]
  - MYOCLONUS [None]
  - NAUSEA [None]
  - SPEECH DISORDER [None]
  - VOMITING [None]
